FAERS Safety Report 4338976-3 (Version None)
Quarter: 2004Q2

REPORT INFORMATION
  Report Type: 
  Country: None (occurrence: None)
  Receive Date: 20040409
  Receipt Date: 20040405
  Transmission Date: 20050107
  Serious: Yes (Death)
  Sender: FDA-Public Use
  Company Number: 200403592

PATIENT
  Age: 84 Year
  Sex: Female

DRUGS (2)
  1. EXTRA STRENGTH TYLENOL [Suspect]
     Dosage: 7500 MG ONCE
     Dates: start: 20021001
  2. UNSPECIFIED PAIN KILLERS [Concomitant]

REACTIONS (1)
  - OVERDOSE [None]
